FAERS Safety Report 17907152 (Version 1)
Quarter: 2020Q2

REPORT INFORMATION
  Report Type: Spontaneous
  Country: US (occurrence: US)
  Receive Date: 20200617
  Receipt Date: 20200617
  Transmission Date: 20200714
  Serious: Yes (Death, Other)
  Sender: FDA-Public Use
  Company Number: None

PATIENT
  Age: 32 Year
  Sex: Male

DRUGS (8)
  1. BUPROPION. [Suspect]
     Active Substance: BUPROPION
     Indication: DEPRESSION
     Route: 048
     Dates: start: 20131101, end: 20141101
  2. FLUOXETINE [Suspect]
     Active Substance: FLUOXETINE HYDROCHLORIDE
  3. CITALOPRAM [Suspect]
     Active Substance: CITALOPRAM HYDROBROMIDE
  4. SERTRALINE [Suspect]
     Active Substance: SERTRALINE HYDROCHLORIDE
     Indication: DEPRESSION
     Route: 048
     Dates: start: 20100101, end: 20160616
  5. SERTRALINE [Suspect]
     Active Substance: SERTRALINE HYDROCHLORIDE
     Indication: ANXIETY
     Route: 048
     Dates: start: 20100101, end: 20160616
  6. PAROXETINE. [Suspect]
     Active Substance: PAROXETINE
  7. TRAMADOL. [Suspect]
     Active Substance: TRAMADOL
  8. OXYCODONE [Suspect]
     Active Substance: OXYCODONE

REACTIONS (5)
  - Mania [None]
  - Agitation [None]
  - Psychotic disorder [None]
  - Stress [None]
  - Depression [None]

NARRATIVE: CASE EVENT DATE: 20131201
